FAERS Safety Report 18037504 (Version 3)
Quarter: 2020Q3

REPORT INFORMATION
  Report Type: Report from Study
  Country: FR (occurrence: FR)
  Receive Date: 20200717
  Receipt Date: 20200819
  Transmission Date: 20201103
  Serious: Yes (Other)
  Sender: FDA-Public Use
  Company Number: FR-BRISTOL-MYERS SQUIBB COMPANY-BMS-2020-055965

PATIENT
  Age: 79 Year
  Sex: Male
  Weight: 75 kg

DRUGS (1)
  1. APIXABAN [Suspect]
     Active Substance: APIXABAN
     Indication: EMBOLISM VENOUS
     Dosage: 5 MILLIGRAM TWICE A DAY OR 2.5 MILLIGRAM TWICE A DAY ACCORDING TO THE RANDOMIZATION GROUP
     Route: 048
     Dates: start: 20191101, end: 20200702

REACTIONS (1)
  - Subdural haematoma [Recovering/Resolving]

NARRATIVE: CASE EVENT DATE: 20200701
